FAERS Safety Report 11068122 (Version 7)
Quarter: 2015Q4

REPORT INFORMATION
  Report Type: Spontaneous
  Country: US (occurrence: US)
  Receive Date: 20150427
  Receipt Date: 20151118
  Transmission Date: 20160304
  Serious: Yes (Other)
  Sender: FDA-Public Use
  Company Number: US-DRREDDYS-USA/USA/15/0047619

PATIENT
  Age: 15 Year
  Sex: Female
  Weight: 54.43 kg

DRUGS (1)
  1. ZENATANE [Suspect]
     Active Substance: ISOTRETINOIN
     Indication: ACNE
     Dates: start: 20150311, end: 20150411

REACTIONS (2)
  - Exposure during pregnancy [Unknown]
  - Selective abortion [Unknown]

NARRATIVE: CASE EVENT DATE: 20150415
